FAERS Safety Report 18023186 (Version 1)
Quarter: 2020Q3

REPORT INFORMATION
  Report Type: Spontaneous
  Country: US (occurrence: US)
  Receive Date: 20200714
  Receipt Date: 20200714
  Transmission Date: 20201103
  Serious: Yes (Other)
  Sender: FDA-Public Use
  Company Number: US-SA-2020SA177870

PATIENT

DRUGS (1)
  1. ZANTAC [Suspect]
     Active Substance: RANITIDINE HYDROCHLORIDE
     Dosage: UNK
     Dates: start: 2018

REACTIONS (5)
  - Pancreatic disorder [Unknown]
  - Pancreatitis [Unknown]
  - Type 3 diabetes mellitus [Not Recovered/Not Resolved]
  - Dizziness [Unknown]
  - Asthenia [Unknown]
